FAERS Safety Report 7405198-9 (Version None)
Quarter: 2011Q2

REPORT INFORMATION
  Report Type: 
  Country: None (occurrence: None)
  Receive Date: 20110404
  Receipt Date: 20110321
  Transmission Date: 20111010
  Serious: Yes (Other)
  Sender: FDA-Public Use
  Company Number: 2008EN000194

PATIENT
  Age: 53 Year
  Sex: Female

DRUGS (3)
  1. ACETAMINOPHEN [Concomitant]
  2. PIRITON [Concomitant]
  3. ABELCET [Suspect]
     Indication: FUNGAL INFECTION
     Dosage: 225 MG;QD;IV
     Route: 042
     Dates: start: 20081008, end: 20081008

REACTIONS (3)
  - TREMOR [None]
  - INFUSION RELATED REACTION [None]
  - HYPERTENSION [None]
